FAERS Safety Report 6673177-5 (Version None)
Quarter: 2010Q2

REPORT INFORMATION
  Report Type: 
  Country: None (occurrence: None)
  Receive Date: 20100408
  Receipt Date: 20100330
  Transmission Date: 20101027
  Serious: Yes (Other)
  Sender: FDA-Public Use
  Company Number: US-JNJFOC-20100400518

PATIENT
  Sex: Female
  Weight: 58.97 kg

DRUGS (4)
  1. REMICADE [Suspect]
     Indication: RHEUMATOID ARTHRITIS
     Route: 042
  2. REMICADE [Suspect]
     Dosage: TOOK FOR 8 YEARS
     Route: 042
  3. METHOTREXATE [Concomitant]
     Indication: RHEUMATOID ARTHRITIS
  4. SOLU-MEDROL [Concomitant]
     Indication: PRURITUS

REACTIONS (4)
  - APPENDICITIS PERFORATED [None]
  - DRUG EFFECT DECREASED [None]
  - LYMPHADENITIS [None]
  - PRURITUS [None]
